FAERS Safety Report 7647596-4 (Version None)
Quarter: 2011Q3

REPORT INFORMATION
  Report Type: 
  Country: None (occurrence: None)
  Receive Date: 20110801
  Receipt Date: 20110728
  Transmission Date: 20111222
  Serious: No
  Sender: FDA-Public Use
  Company Number: US-TEVA-293720USA

PATIENT
  Sex: Female
  Weight: 65.83 kg

DRUGS (2)
  1. PLAN B ONE-STEP [Suspect]
     Indication: POST COITAL CONTRACEPTION
     Dosage: 1.5 MILLIGRAM;
     Route: 048
     Dates: start: 20110727, end: 20110727
  2. LABETALOL HCL [Concomitant]
     Indication: HYPERTENSION
     Dosage: 200 MILLIGRAM;
     Route: 048

REACTIONS (2)
  - FUNGAL INFECTION [None]
  - VAGINAL DISCHARGE [None]
